FAERS Safety Report 7291218-1 (Version None)
Quarter: 2011Q1

REPORT INFORMATION
  Report Type: 
  Country: None (occurrence: None)
  Receive Date: 20110214
  Receipt Date: 20110105
  Transmission Date: 20110831
  Serious: Yes (Other)
  Sender: FDA-Public Use
  Company Number: ES-JNJCH-2011003207

PATIENT
  Age: 39 Year
  Sex: Female

DRUGS (2)
  1. CETIRIZINE HYDROCHLORIDE [Suspect]
     Indication: CONJUNCTIVITIS
  2. CETIRIZINE HYDROCHLORIDE [Suspect]
     Indication: NASOPHARYNGITIS
     Dosage: TEXT:10MG 2 MONTHS (APPROX. TOTAL DOSE 500MG)
     Route: 065

REACTIONS (2)
  - LIVER DISORDER [None]
  - HEPATITIS TOXIC [None]
